FAERS Safety Report 10458804 (Version 2)
Quarter: 2014Q3

REPORT INFORMATION
  Report Type: Spontaneous
  Country: US (occurrence: US)
  Receive Date: 20140917
  Receipt Date: 20140918
  Transmission Date: 20150326
  Serious: Yes (Other)
  Sender: FDA-Public Use
  Company Number: US-RB-068587-14

PATIENT
  Age: 26 Year
  Sex: Male

DRUGS (1)
  1. DELSYM [Suspect]
     Active Substance: DEXTROMETHORPHAN
     Indication: PRODUCT USED FOR UNKNOWN INDICATION
     Dosage: INGESTED AT LEAST HALF A BOTTLE 2 HRS BEFORE REPORTING
     Route: 048
     Dates: start: 20140907

REACTIONS (5)
  - Headache [Recovered/Resolved]
  - Ataxia [Recovered/Resolved]
  - Feeling drunk [Recovered/Resolved]
  - Confusional state [Recovered/Resolved]
  - Overdose [Recovered/Resolved]

NARRATIVE: CASE EVENT DATE: 20140907
